FAERS Safety Report 21159954 (Version 1)
Quarter: 2022Q3

REPORT INFORMATION
  Report Type: Spontaneous
  Country: ES (occurrence: ES)
  Receive Date: 20220802
  Receipt Date: 20220802
  Transmission Date: 20221027
  Serious: Yes (Hospitalization)
  Sender: FDA-Public Use
  Company Number: None

PATIENT
  Age: 77 Year
  Sex: Female

DRUGS (5)
  1. ALPRAZOLAM [Suspect]
     Active Substance: ALPRAZOLAM
     Indication: Intentional overdose
     Dosage: UNK
     Route: 065
     Dates: start: 20220613, end: 20220613
  2. AMLODIPINE BESYLATE [Concomitant]
     Active Substance: AMLODIPINE BESYLATE
     Indication: Hypertension
     Dosage: 10 MG, QD
     Route: 048
     Dates: start: 201205
  3. SOLUDRONATE SEMANAL [Concomitant]
     Indication: Osteoporosis
     Dosage: 70 MG, QW (4 FRASCOS UNIDOSIS DE 100 ML)
     Route: 048
     Dates: start: 20220525, end: 20220613
  4. CIDINE [Concomitant]
     Indication: Gastrooesophageal reflux disease
     Dosage: 2 ML, QD
     Route: 048
     Dates: start: 201506, end: 20220613
  5. ELIQUIS [Concomitant]
     Active Substance: APIXABAN
     Indication: Atrial fibrillation
     Dosage: UNK
     Route: 048

REACTIONS (2)
  - Confusional state [Recovered/Resolved]
  - Intentional overdose [Recovered/Resolved]

NARRATIVE: CASE EVENT DATE: 20220613
